FAERS Safety Report 9356209 (Version 3)
Quarter: 2013Q3

REPORT INFORMATION
  Report Type: Spontaneous
  Country: PL (occurrence: PL)
  Receive Date: 20130619
  Receipt Date: 20130704
  Transmission Date: 20140515
  Serious: Yes (Life-Threatening, Hospitalization)
  Sender: FDA-Public Use
  Company Number: PL-PFIZER INC-2013183384

PATIENT
  Age: 48 Year
  Sex: Male
  Weight: 60 kg

DRUGS (2)
  1. CISPLATIN [Suspect]
     Indication: LUNG NEOPLASM MALIGNANT
     Dosage: 136.51 MG PER DAY
     Route: 042
     Dates: start: 20130524, end: 20130524
  2. NAVELBINE [Concomitant]
     Indication: LUNG NEOPLASM MALIGNANT
     Dosage: 51.19, UNK
     Route: 042
     Dates: start: 20130524, end: 20130524

REACTIONS (2)
  - Pyrexia [Recovering/Resolving]
  - Asthenia [Recovering/Resolving]
